FAERS Safety Report 12453375 (Version 1)
Quarter: 2016Q2

REPORT INFORMATION
  Report Type: Spontaneous
  Country: US (occurrence: US)
  Receive Date: 20160609
  Receipt Date: 20160609
  Transmission Date: 20160815
  Serious: Yes (Death, Hospitalization, Other)
  Sender: FDA-Public Use
  Company Number: PHEH2016US014018

PATIENT
  Sex: Male

DRUGS (2)
  1. VOTRIENT [Suspect]
     Active Substance: PAZOPANIB HYDROCHLORIDE
     Indication: MALIGNANT NEOPLASM OF RENAL PELVIS
     Dosage: 800 MG, QD
     Route: 048
     Dates: start: 20151209
  2. VOTRIENT [Suspect]
     Active Substance: PAZOPANIB HYDROCHLORIDE
     Indication: RENAL CELL CARCINOMA

REACTIONS (5)
  - Metastatic neoplasm [Unknown]
  - Dysphagia [Unknown]
  - Metastatic renal cell carcinoma [Fatal]
  - Oesophageal compression [Unknown]
  - Feeding disorder [Unknown]
